FAERS Safety Report 5047645-6 (Version None)
Quarter: 2006Q3

REPORT INFORMATION
  Report Type: 
  Country: None (occurrence: None)
  Receive Date: 20060711
  Receipt Date: 20060704
  Transmission Date: 20061208
  Serious: Yes (Death, Other)
  Sender: FDA-Public Use
  Company Number: PHBS2006BR09980

PATIENT
  Sex: Female

DRUGS (2)
  1. CODATEN [Suspect]
     Dosage: 2 TAB/DAY
     Route: 048
     Dates: start: 20051114, end: 20051114
  2. CODATEN [Suspect]
     Dosage: 1 TAB/DAY
     Route: 048
     Dates: start: 20051115, end: 20051115

REACTIONS (2)
  - EMBOLISM [None]
  - HALLUCINATION [None]
